FAERS Safety Report 10667056 (Version 1)
Quarter: 2014Q4

REPORT INFORMATION
  Report Type: Spontaneous
  Country: US (occurrence: None)
  Receive Date: 20141219
  Receipt Date: 20141219
  Transmission Date: 20150529
  Serious: No
  Sender: FDA-Public Use
  Company Number: None

PATIENT
  Age: 30 Year
  Sex: Female
  Weight: 54.43 kg

DRUGS (1)
  1. XULANE [Suspect]
     Active Substance: ETHINYL ESTRADIOL\NORELGESTROMIN
     Indication: CONTRACEPTION
     Dosage: REPLACE WEEKLY  WEEKLY APPLIED TO SURFACE , USUALLY THE SKIN
     Dates: start: 20140601, end: 20140901

REACTIONS (5)
  - Application site pruritus [None]
  - Application site erythema [None]
  - Application site dryness [None]
  - Application site irritation [None]
  - Product substitution issue [None]

NARRATIVE: CASE EVENT DATE: 20140901
